FAERS Safety Report 24282040 (Version 2)
Quarter: 2024Q3

REPORT INFORMATION
  Report Type: Spontaneous
  Country: CN (occurrence: CN)
  Receive Date: 20240904
  Receipt Date: 20240909
  Transmission Date: 20241017
  Serious: Yes (Other)
  Sender: PFIZER
  Company Number: CN-PFIZER INC-PV202400114139

PATIENT
  Age: 49 Year
  Sex: Female
  Weight: 51 kg

DRUGS (4)
  1. PACLITAXEL [Suspect]
     Active Substance: PACLITAXEL
     Indication: Uterine cancer
     Dosage: 240 MG, 1X/DAY
     Route: 041
     Dates: start: 20240810, end: 20240810
  2. CADONILIMAB [Suspect]
     Active Substance: CADONILIMAB
     Indication: Uterine cancer
     Dosage: 500.000 MG, 1X/DAY
     Route: 041
     Dates: start: 20240810, end: 20240810
  3. CARBOPLATIN [Suspect]
     Active Substance: CARBOPLATIN
     Indication: Uterine cancer
     Dosage: 0.6 G, 1X/DAY
     Route: 041
     Dates: start: 20240810, end: 20240810
  4. PALONOSETRON HYDROCHLORIDE [Concomitant]
     Active Substance: PALONOSETRON HYDROCHLORIDE
     Indication: Uterine cancer
     Dosage: 1 DF, 1X/DAY
     Route: 041
     Dates: start: 20240810, end: 20240810

REACTIONS (4)
  - Chest discomfort [Recovering/Resolving]
  - Abdominal pain [Recovering/Resolving]
  - Dyspnoea [Recovering/Resolving]
  - Off label use [Recovered/Resolved]

NARRATIVE: CASE EVENT DATE: 20240810
